FAERS Safety Report 8803428 (Version 1)
Quarter: 2012Q4

REPORT INFORMATION
  Report Type: 
  Country: IT (occurrence: IT)
  Receive Date: 20120924
  Receipt Date: 20120924
  Transmission Date: 20130627
  Serious: Yes (Hospitalization)
  Sender: FDA-Public Use
  Company Number: IT-BRISTOL-MYERS SQUIBB COMPANY-16221293

PATIENT
  Sex: Female

DRUGS (5)
  1. ORENCIA [Suspect]
     Indication: RHEUMATOID ARTHRITIS
     Dosage: ROA:Endovenous
     Route: 042
     Dates: start: 201103
  2. LEFLUNOMIDE [Suspect]
     Indication: RHEUMATOID ARTHRITIS
     Dates: start: 201206
  3. ARAVA [Concomitant]
  4. LONOX [Concomitant]
     Dosage: 1DF:30(units no.s)
  5. PREDNISONE [Concomitant]

REACTIONS (1)
  - Neuropathy peripheral [Recovered/Resolved]
